FAERS Safety Report 12313064 (Version 1)
Quarter: 2016Q2

REPORT INFORMATION
  Report Type: Report from Study
  Country: US (occurrence: US)
  Receive Date: 20160428
  Receipt Date: 20160428
  Transmission Date: 20160815
  Serious: Yes (Other)
  Sender: FDA-Public Use
  Company Number: PHEH2014US002197

PATIENT
  Age: 48 Year
  Sex: Female

DRUGS (10)
  1. MULTIVITAMIN                       /00097801/ [Concomitant]
     Active Substance: VITAMINS
     Indication: PRODUCT USED FOR UNKNOWN INDICATION
     Route: 048
  2. OMEGA 3 [Concomitant]
     Active Substance: OMEGA-3 FATTY ACIDS
     Indication: PRODUCT USED FOR UNKNOWN INDICATION
     Route: 065
  3. VITAMIN D [Concomitant]
     Active Substance: CHOLECALCIFEROL
     Indication: PRODUCT USED FOR UNKNOWN INDICATION
     Route: 048
  4. AFINITOR [Suspect]
     Active Substance: EVEROLIMUS
     Indication: ANGIOMYOLIPOMA
     Dosage: 10 MG, DAILY
     Route: 048
     Dates: start: 20131030, end: 20140213
  5. RAMIPRIL. [Concomitant]
     Active Substance: RAMIPRIL
     Indication: PRODUCT USED FOR UNKNOWN INDICATION
     Route: 065
  6. KEPPRA [Concomitant]
     Active Substance: LEVETIRACETAM
     Indication: PRODUCT USED FOR UNKNOWN INDICATION
     Route: 065
  7. NASONEX [Concomitant]
     Active Substance: MOMETASONE FUROATE
     Indication: PRODUCT USED FOR UNKNOWN INDICATION
     Route: 065
  8. NORCO [Concomitant]
     Active Substance: ACETAMINOPHEN\HYDROCODONE BITARTRATE
     Indication: PRODUCT USED FOR UNKNOWN INDICATION
     Route: 065
  9. FUROSEMIDE. [Concomitant]
     Active Substance: FUROSEMIDE
     Indication: PRODUCT USED FOR UNKNOWN INDICATION
     Route: 065
  10. TRILIPIX [Concomitant]
     Active Substance: FENOFIBRIC ACID
     Indication: PRODUCT USED FOR UNKNOWN INDICATION
     Dosage: 135 MG, QD
     Route: 065

REACTIONS (19)
  - High density lipoprotein decreased [Unknown]
  - Peripheral swelling [Not Recovered/Not Resolved]
  - Glossodynia [Not Recovered/Not Resolved]
  - Blood glucose increased [Unknown]
  - Skin atrophy [Not Recovered/Not Resolved]
  - Hyperglycaemia [Unknown]
  - Hunger [Not Recovered/Not Resolved]
  - Dyspepsia [Not Recovered/Not Resolved]
  - Mouth ulceration [Unknown]
  - Protein urine present [Unknown]
  - Thirst [Not Recovered/Not Resolved]
  - Liver function test increased [Unknown]
  - Blood triglycerides increased [Unknown]
  - Alopecia [Not Recovered/Not Resolved]
  - Metrorrhagia [Not Recovered/Not Resolved]
  - Renal disorder [Unknown]
  - Blood cholesterol increased [Unknown]
  - Acute kidney injury [Unknown]
  - Transaminases increased [Unknown]

NARRATIVE: CASE EVENT DATE: 20140206
